FAERS Safety Report 14320537 (Version 1)
Quarter: 2017Q4

REPORT INFORMATION
  Report Type: Spontaneous
  Country: US (occurrence: US)
  Receive Date: 20171222
  Receipt Date: 20171222
  Transmission Date: 20180321
  Serious: Yes (Other)
  Sender: FDA-Public Use
  Company Number: None

PATIENT
  Age: 79 Year
  Sex: Female
  Weight: 76.5 kg

DRUGS (12)
  1. ULORIC [Suspect]
     Active Substance: FEBUXOSTAT
     Indication: BLOOD URIC ACID INCREASED
     Dosage: ?          QUANTITY:14 TABLET(S);?
     Route: 048
  2. METOPROLOL. [Concomitant]
     Active Substance: METOPROLOL
  3. DIGOXIN. [Concomitant]
     Active Substance: DIGOXIN
  4. NITROFURANTOIN. [Concomitant]
     Active Substance: NITROFURANTOIN
  5. METFORMIN [Concomitant]
     Active Substance: METFORMIN HYDROCHLORIDE
  6. MULTIVITAMIN [Concomitant]
     Active Substance: VITAMINS
  7. SIMVASTATIN. [Concomitant]
     Active Substance: SIMVASTATIN
  8. COLCHICINE. [Concomitant]
     Active Substance: COLCHICINE
  9. LOSARTAN. [Concomitant]
     Active Substance: LOSARTAN
  10. SPIRNOLACTONE [Concomitant]
  11. ASPIRIN. [Concomitant]
     Active Substance: ASPIRIN
  12. FEROUSOMIDE [Concomitant]

REACTIONS (2)
  - Pruritus generalised [None]
  - Rash generalised [None]

NARRATIVE: CASE EVENT DATE: 20171221
